FAERS Safety Report 4348005-3 (Version None)
Quarter: 2004Q2

REPORT INFORMATION
  Report Type: 
  Country: None (occurrence: None)
  Receive Date: 20040422
  Receipt Date: 20040223
  Transmission Date: 20050107
  Serious: Yes (Hospitalization, Other)
  Sender: FDA-Public Use
  Company Number: KII-2004-0009569

PATIENT
  Sex: Female

DRUGS (3)
  1. MORPHINE SULFATE [Suspect]
  2. NEURONTIN [Suspect]
  3. TRAMADOL HCL [Suspect]

REACTIONS (10)
  - AGITATION [None]
  - ANOXIC ENCEPHALOPATHY [None]
  - ATRIAL FIBRILLATION [None]
  - CEREBELLAR INFARCTION [None]
  - COMA [None]
  - CONFUSIONAL STATE [None]
  - HALLUCINATION [None]
  - HEMIPARESIS [None]
  - MULTIPLE DRUG OVERDOSE [None]
  - SOMNOLENCE [None]
